FAERS Safety Report 10603013 (Version 2)
Quarter: 2014Q4

REPORT INFORMATION
  Report Type: Spontaneous
  Country: IT (occurrence: IT)
  Receive Date: 20141124
  Receipt Date: 20141201
  Transmission Date: 20150529
  Serious: Yes (Hospitalization)
  Sender: FDA-Public Use
  Company Number: IT-TEVA-523048ISR

PATIENT
  Age: 59 Year
  Sex: Male

DRUGS (3)
  1. ETOPOSIDE TEVA [Suspect]
     Active Substance: ETOPOSIDE
     Indication: ACUTE MYELOID LEUKAEMIA
     Dosage: 163 MILLIGRAM DAILY;
     Route: 042
     Dates: start: 20140813, end: 20140818
  2. ONKOTRONE [Suspect]
     Active Substance: MITOXANTRONE HYDROCHLORIDE
     Indication: ACUTE MYELOID LEUKAEMIA
     Dosage: 12.2 MILLIGRAM DAILY;
     Route: 042
     Dates: start: 20140813, end: 20140817
  3. CITARABINA HOSPIRA [Suspect]
     Active Substance: CYTARABINE
     Indication: ACUTE MYELOID LEUKAEMIA
     Dosage: 2040 MILLIGRAM DAILY;
     Route: 042
     Dates: start: 20140813, end: 20140818

REACTIONS (4)
  - Pollakiuria [Recovering/Resolving]
  - Sepsis [Recovering/Resolving]
  - Skin lesion [Recovering/Resolving]
  - Dysuria [Recovering/Resolving]

NARRATIVE: CASE EVENT DATE: 20140826
